FAERS Safety Report 4344682-1 (Version None)
Quarter: 2004Q2

REPORT INFORMATION
  Report Type: 
  Country: None (occurrence: None)
  Receive Date: 20040419
  Receipt Date: 20040406
  Transmission Date: 20050107
  Serious: Yes (Hospitalization, Other)
  Sender: FDA-Public Use
  Company Number: 2004022539

PATIENT
  Age: 54 Year
  Sex: Female

DRUGS (6)
  1. AMLODIPINE [Suspect]
     Indication: HYPERTENSION
     Dosage: 5 MG, DAILY
     Dates: start: 20040201, end: 20040101
  2. IRBESARTAN [Suspect]
     Indication: HYPERTENSION
     Dates: end: 20040201
  3. FLUVASTATIN [Concomitant]
  4. METFORMIN HYDROCHLORIDE [Concomitant]
  5. BUDENOSIDE [Concomitant]
  6. FORMOTEROL FUMARATE [Concomitant]

REACTIONS (1)
  - ANGIONEUROTIC OEDEMA [None]
